FAERS Safety Report 24125628 (Version 1)
Quarter: 2024Q3

REPORT INFORMATION
  Report Type: Spontaneous
  Country: NL (occurrence: NL)
  Receive Date: 20240723
  Receipt Date: 20240723
  Transmission Date: 20241016
  Serious: Yes (Life-Threatening, Hospitalization, Other)
  Sender: ACCORD
  Company Number: None

PATIENT
  Age: 61 Year
  Sex: Female
  Weight: 63 kg

DRUGS (8)
  1. OXALIPLATIN [Suspect]
     Active Substance: OXALIPLATIN
     Indication: Endometrial cancer
     Dosage: 1 TOTAL DOSE OF 850MG
     Dates: start: 20240524
  2. PACLITAXEL [Concomitant]
     Active Substance: PACLITAXEL
     Dosage: SOLUTION FOR INFUSION, 6 MG/ML
  3. OXYCODONE [Concomitant]
     Active Substance: OXYCODONE
     Dosage: STRENGTH: 5 MG
  4. ACETAMINOPHEN [Concomitant]
     Active Substance: ACETAMINOPHEN
     Dosage: STRENGTH: 500 MG
  5. DULOXETINE [Concomitant]
     Active Substance: DULOXETINE
     Dosage: STRENGTH: 30 MG
  6. TIOTROPIUM [Concomitant]
     Active Substance: TIOTROPIUM
     Dosage: INHALATION POWDER, 18 MCG
  7. OMEPRAZOLE [Concomitant]
     Active Substance: OMEPRAZOLE
     Dosage: STRENGTH: 20 MG
  8. ATORVASTATIN [Concomitant]
     Active Substance: ATORVASTATIN
     Dosage: STRENGTH: 40 MG

REACTIONS (2)
  - Ventricular fibrillation [Recovering/Resolving]
  - Cardiac arrest [Recovering/Resolving]
